FAERS Safety Report 16070126 (Version 1)
Quarter: 2019Q1

REPORT INFORMATION
  Report Type: Spontaneous
  Country: ES (occurrence: ES)
  Receive Date: 20190314
  Receipt Date: 20190314
  Transmission Date: 20190418
  Serious: Yes (Hospitalization)
  Sender: FDA-Public Use
  Company Number: ES-ACCORD-111845

PATIENT
  Age: 46 Year
  Sex: Female

DRUGS (6)
  1. OXCARBAZEPINE. [Concomitant]
     Active Substance: OXCARBAZEPINE
     Indication: SCHIZOPHRENIA
  2. QUETIAPINE/QUETIAPINE FUMARATE [Concomitant]
     Indication: SCHIZOPHRENIA
  3. CLORAZEPIC ACID [Concomitant]
     Active Substance: CLORAZEPIC ACID
     Indication: SCHIZOPHRENIA
  4. CLOZAPINE. [Suspect]
     Active Substance: CLOZAPINE
     Indication: SCHIZOPHRENIA
     Dosage: INCREASED TO 200 MG /DAY
     Route: 048
  5. LORAZEPAM. [Concomitant]
     Active Substance: LORAZEPAM
     Indication: SCHIZOPHRENIA
  6. VENLAFAXINE/VENLAFAXINE HYDROCHLORIDE [Concomitant]
     Indication: SCHIZOPHRENIA

REACTIONS (4)
  - Diarrhoea [Recovered/Resolved]
  - Eosinophilia [Recovered/Resolved]
  - Serositis [Unknown]
  - Pleural effusion [Recovered/Resolved]
